FAERS Safety Report 8919503 (Version 1)
Quarter: 2012Q4

REPORT INFORMATION
  Report Type: Spontaneous
  Country: US (occurrence: None)
  Receive Date: 20121114
  Receipt Date: 20121114
  Transmission Date: 20130627
  Serious: Yes (Hospitalization)
  Sender: FDA-Public Use
  Company Number: 2012100132

PATIENT
  Age: 37 Year
  Sex: Male

DRUGS (2)
  1. ROWASA [Suspect]
     Indication: ULCERATIVE COLITIS
     Dosage: (2 Dosage forms, 1 in 1 wk)
     Dates: start: 20091124, end: 20120403
  2. PENTASA [Suspect]
     Indication: PROCTOCOLITIS
     Dosage: (2 gm, 1 in 1D)
     Route: 048
     Dates: start: 20091124, end: 20120703

REACTIONS (5)
  - Sensation of heaviness [None]
  - Myalgia [None]
  - Pain in extremity [None]
  - Arthralgia [None]
  - Systemic lupus erythematosus [None]
